FAERS Safety Report 7635560-0 (Version None)
Quarter: 2011Q3

REPORT INFORMATION
  Report Type: 
  Country: None (occurrence: None)
  Receive Date: 20110726
  Receipt Date: 20110722
  Transmission Date: 20111222
  Serious: Yes (Death)
  Sender: FDA-Public Use
  Company Number: IT-SANOFI-AVENTIS-2011SA046883

PATIENT
  Age: 55 Year
  Sex: Male

DRUGS (3)
  1. RAMIPRIL [Concomitant]
     Route: 048
  2. MULTAQ [Suspect]
     Indication: ATRIAL FIBRILLATION
     Route: 048
     Dates: start: 20110322, end: 20110422
  3. WARFARIN SODIUM [Concomitant]

REACTIONS (1)
  - SUDDEN DEATH [None]
